FAERS Safety Report 7028269-8 (Version None)
Quarter: 2010Q3

REPORT INFORMATION
  Report Type: 
  Country: None (occurrence: None)
  Receive Date: 20100930
  Receipt Date: 20100921
  Transmission Date: 20110219
  Serious: Yes (Death)
  Sender: FDA-Public Use
  Company Number: 2010-3229

PATIENT
  Age: 72 Year
  Sex: Female

DRUGS (1)
  1. APO-GO AMPOULES (APO-GO) (APOMORPHINE HYDROCHLORIDE) (APOMORPHINE HYDR [Suspect]
     Indication: PRODUCT USED FOR UNKNOWN INDICATION
     Dosage: CONTINUOUS INFUSION (06:30AM - 10:00PM),CONTINUOUS INFUSION (06:30 - 10::00PM),SUBCUTANEOUS
     Route: 058
     Dates: start: 20080616

REACTIONS (1)
  - DEATH [None]
